FAERS Safety Report 4580918-X (Version None)
Quarter: 2005Q1

REPORT INFORMATION
  Report Type: 
  Country: None (occurrence: None)
  Receive Date: 20050127
  Receipt Date: 20041116
  Transmission Date: 20050727
  Serious: No
  Sender: FDA-Public Use
  Company Number: US_0411108521

PATIENT
  Age: 14 Year
  Sex: Female
  Weight: 60 kg

DRUGS (1)
  1. STRATTERA [Suspect]
     Indication: ATTENTION DEFICIT/HYPERACTIVITY DISORDER
     Dosage: 40 MG/ 2 DAY
     Dates: start: 20040201

REACTIONS (4)
  - ACNE [None]
  - FEELING ABNORMAL [None]
  - FUNGAL INFECTION [None]
  - HORMONE LEVEL ABNORMAL [None]
